FAERS Safety Report 23499189 (Version 4)
Quarter: 2024Q2

REPORT INFORMATION
  Report Type: Spontaneous
  Country: DE (occurrence: DE)
  Receive Date: 20240208
  Receipt Date: 20240502
  Transmission Date: 20240715
  Serious: Yes (Hospitalization, Other)
  Sender: FDA-Public Use
  Company Number: DE-NOVOPROD-1170302

PATIENT
  Age: 76 Year
  Sex: Male
  Weight: 126 kg

DRUGS (2)
  1. OZEMPIC [Suspect]
     Active Substance: SEMAGLUTIDE
     Indication: Type 2 diabetes mellitus
     Dosage: 1 MG, QW
     Route: 058
     Dates: start: 20230625
  2. VALSARTAN [Concomitant]
     Active Substance: VALSARTAN
     Indication: Hypertension
     Dosage: 160 MG, QD
     Dates: start: 20220101

REACTIONS (3)
  - C-reactive protein increased [Recovered/Resolved]
  - Bile duct stone [Unknown]
  - Off label use [Unknown]

NARRATIVE: CASE EVENT DATE: 20230625
